FAERS Safety Report 19627403 (Version 1)
Quarter: 2021Q3

REPORT INFORMATION
  Report Type: Spontaneous
  Country: US (occurrence: US)
  Receive Date: 20210729
  Receipt Date: 20210729
  Transmission Date: 20211014
  Serious: No
  Sender: FDA-Public Use
  Company Number: US-TEVA-2021-US-1872893

PATIENT
  Sex: Female

DRUGS (7)
  1. FISH OIL [Concomitant]
     Active Substance: FISH OIL
  2. VITAMIN D3 [Concomitant]
     Active Substance: CHOLECALCIFEROL
  3. AUSTEDO [Suspect]
     Active Substance: DEUTETRABENAZINE
     Indication: TARDIVE DYSKINESIA
     Dosage: 6 MILLIGRAM DAILY;
     Route: 048
     Dates: start: 20201114
  4. BIOTIN [Concomitant]
     Active Substance: BIOTIN
  5. TETRACYCLINE [Concomitant]
     Active Substance: TETRACYCLINE
  6. MULTIVITAMIN [Concomitant]
     Active Substance: VITAMINS
  7. DUCODYL [Concomitant]

REACTIONS (3)
  - Malaise [Unknown]
  - Drug ineffective [Unknown]
  - Aggression [Unknown]
